FAERS Safety Report 10884710 (Version 1)
Quarter: 2015Q1

REPORT INFORMATION
  Report Type: Spontaneous
  Country: JP (occurrence: JP)
  Receive Date: 20150304
  Receipt Date: 20150304
  Transmission Date: 20150721
  Serious: Yes (Death)
  Sender: FDA-Public Use
  Company Number: JP-MALLINCKRODT-T201501413

PATIENT
  Age: 50 Year
  Sex: Female
  Weight: 40 kg

DRUGS (7)
  1. FERROUS CITRATE [Concomitant]
     Active Substance: FERROUS CITRATE
     Dosage: 150 MG
     Route: 048
     Dates: end: 20150205
  2. ATMIPHEN [Concomitant]
     Dosage: 800 MG
     Route: 048
     Dates: end: 20150205
  3. METHADONE [Suspect]
     Active Substance: METHADONE HYDROCHLORIDE
     Indication: CANCER PAIN
     Dosage: 5MG (15MG DAILY DOSE)
     Route: 048
     Dates: start: 20141217, end: 20150205
  4. OXINORM [Concomitant]
     Active Substance: OXYCODONE HYDROCHLORIDE
     Dosage: 20 MG, P.R.N.
     Route: 048
     Dates: start: 20141216
  5. DECADRON [Concomitant]
     Active Substance: DEXAMETHASONE
     Dosage: 0.5 MG
     Route: 048
     Dates: end: 20150205
  6. LYRICA [Concomitant]
     Active Substance: PREGABALIN
     Dosage: 150 MG
     Route: 048
     Dates: end: 20150205
  7. MAGMITT [Concomitant]
     Active Substance: MAGNESIUM OXIDE
     Dosage: 1500 MG
     Route: 048
     Dates: end: 20150205

REACTIONS (1)
  - Cervix carcinoma [Fatal]
